FAERS Safety Report 6894765-7 (Version None)
Quarter: 2010Q3

REPORT INFORMATION
  Report Type: 
  Country: None (occurrence: None)
  Receive Date: 20100708
  Receipt Date: 20100416
  Transmission Date: 20110219
  Serious: Yes (Other)
  Sender: FDA-Public Use
  Company Number: 2010048640

PATIENT
  Age: 31 Year
  Sex: Male
  Weight: 59 kg

DRUGS (1)
  1. CHANTIX [Suspect]
     Indication: SMOKING CESSATION THERAPY
     Dosage: 0.5 MG, 1X/DAY, ORAL : 1 MG, 2X/DAY
     Route: 048
     Dates: start: 20100320

REACTIONS (3)
  - ACUTE PSYCHOSIS [None]
  - DEPRESSED MOOD [None]
  - OCULAR HYPERAEMIA [None]
